FAERS Safety Report 5379818-7 (Version None)
Quarter: 2007Q3

REPORT INFORMATION
  Report Type: 
  Country: None (occurrence: None)
  Receive Date: 20070703
  Receipt Date: 20070619
  Transmission Date: 20080115
  Serious: Yes (Other)
  Sender: FDA-Public Use
  Company Number: DSU-2007-00335

PATIENT
  Age: 56 Year
  Sex: Male

DRUGS (2)
  1. OLMETEC PLUS (HYDROCHLOROTHIAZIDE, OLMESARTAN MEDOXOMIL) (TABLET) (HYD [Suspect]
     Indication: HYPERTENSION
     Dosage: (1 TAB DAILY), PER ORAL
     Route: 048
     Dates: start: 20070219, end: 20070318
  2. NORVASC [Suspect]
     Indication: HYPERTENSION
     Dosage: 10 MG (1 CAPSULE DAILY), PER ORAL
     Route: 048
     Dates: start: 20070219, end: 20070318

REACTIONS (1)
  - ERECTILE DYSFUNCTION [None]
